FAERS Safety Report 11328908 (Version 2)
Quarter: 2015Q3

REPORT INFORMATION
  Report Type: Report from Study
  Country: ES (occurrence: ES)
  Receive Date: 20150801
  Receipt Date: 20150829
  Transmission Date: 20151125
  Serious: Yes (Death, Other)
  Sender: FDA-Public Use
  Company Number: ES-AUROBINDO-AUR-APL-2015-06459

PATIENT

DRUGS (1)
  1. FLECAINIDE [Suspect]
     Active Substance: FLECAINIDE
     Indication: SUPRAVENTRICULAR TACHYCARDIA
     Route: 064

REACTIONS (5)
  - Foetal death [Fatal]
  - Myocardial ischaemia [Fatal]
  - Tachycardia induced cardiomyopathy [Fatal]
  - Foetal exposure during pregnancy [Unknown]
  - Myocardial necrosis [Fatal]
